FAERS Safety Report 8028649 (Version 2)
Quarter: 2012Q4

REPORT INFORMATION
  Report Type: 
  Country: US (occurrence: US)
  Receive Date: 20110711
  Receipt Date: 20120905
  Transmission Date: 20130627
  Serious: Yes (Other)
  Sender: FDA-Public Use
  Company Number: US-ROCHE-788211

PATIENT
  Sex: Female
  Weight: 58.57 kg

DRUGS (1)
  1. ACCUTANE [Suspect]
     Indication: ACNE
     Route: 065
     Dates: start: 199911, end: 2002

REACTIONS (6)
  - Inflammatory bowel disease [Unknown]
  - Colitis ulcerative [Unknown]
  - Depression [Not Recovered/Not Resolved]
  - Stress [Not Recovered/Not Resolved]
  - Injury [Unknown]
  - Irritable bowel syndrome [Unknown]
